FAERS Safety Report 7995905-9 (Version None)
Quarter: 2011Q4

REPORT INFORMATION
  Report Type: 
  Country: None (occurrence: None)
  Receive Date: 20111220
  Receipt Date: 20111216
  Transmission Date: 20120403
  Serious: Yes (Hospitalization)
  Sender: FDA-Public Use
  Company Number: BR-ROCHE-705474

PATIENT
  Sex: Female
  Weight: 82 kg

DRUGS (10)
  1. LEVOTHYROXINE SODIUM [Concomitant]
  2. METHOTREXATE [Concomitant]
  3. MYCOPHENOLATE MOFETIL [Concomitant]
  4. MABTHERA [Suspect]
     Route: 042
  5. ANALGESIC NOS [Concomitant]
     Indication: PAIN
  6. MABTHERA [Suspect]
     Indication: RHEUMATOID ARTHRITIS
     Dosage: FORM: INFUSION; DOSE: 1000 MG/ML; RECEIVED 2 INFUSIONS, EVERY 15 DAYS
     Route: 042
     Dates: start: 20090808, end: 20090826
  7. AFRIN [Concomitant]
  8. CORTISONE ACETATE [Concomitant]
  9. PREDNISOLONE [Concomitant]
     Dosage: DRUG REPORTED AS PREDSIN
  10. MABTHERA [Suspect]
     Dosage: FORM: INFUSION; DOSE: 1000 MG/ML; RECEIVED 2 INFUSIONS, EVERY 15 DAYS
     Route: 042
     Dates: start: 20100503, end: 20100514

REACTIONS (12)
  - RHEUMATOID ARTHRITIS [None]
  - ARTHRITIS [None]
  - OSTEOPOROSIS [None]
  - BLOOD PRESSURE FLUCTUATION [None]
  - OSTEOARTHRITIS [None]
  - DYSPNOEA [None]
  - PAIN IN EXTREMITY [None]
  - FOOT FRACTURE [None]
  - WALKING DISABILITY [None]
  - HOT FLUSH [None]
  - BLOOD PRESSURE INCREASED [None]
  - NASOPHARYNGITIS [None]
